FAERS Safety Report 18295646 (Version 1)
Quarter: 2020Q3

REPORT INFORMATION
  Report Type: Spontaneous
  Country: US (occurrence: US)
  Receive Date: 20200922
  Receipt Date: 20200922
  Transmission Date: 20201103
  Serious: No
  Sender: FDA-Public Use
  Company Number: US-AMARIN PHARMA, INC.-2020AMR000184

PATIENT
  Age: 76 Year
  Sex: Female
  Weight: 59.02 kg

DRUGS (5)
  1. THERACRAN [Concomitant]
     Indication: PROPHYLAXIS URINARY TRACT INFECTION
  2. VITAMIN C [Concomitant]
     Active Substance: ASCORBIC ACID
     Indication: PROPHYLAXIS URINARY TRACT INFECTION
     Dosage: PRIOR TO VASCEPA
  3. VITAMIN D [Concomitant]
     Active Substance: VITAMIN D NOS
     Indication: PROPHYLAXIS URINARY TRACT INFECTION
     Dosage: PRIOR TO VASCEPA
  4. ACIDOPHILUS [Concomitant]
     Active Substance: LACTOBACILLUS ACIDOPHILUS
     Indication: PROPHYLAXIS URINARY TRACT INFECTION
     Dosage: PRIOR TO VASCEPA
  5. VASCEPA [Suspect]
     Active Substance: ICOSAPENT ETHYL
     Indication: PRODUCT USED FOR UNKNOWN INDICATION
     Route: 048
     Dates: start: 202003, end: 20200306

REACTIONS (9)
  - Intentional underdose [Unknown]
  - Constipation [Recovering/Resolving]
  - Pain [Not Recovered/Not Resolved]
  - Dizziness [Not Recovered/Not Resolved]
  - Abdominal pain upper [Not Recovered/Not Resolved]
  - Malaise [Not Recovered/Not Resolved]
  - Vulvovaginal pain [Not Recovered/Not Resolved]
  - Chills [Unknown]
  - Myalgia [Not Recovered/Not Resolved]

NARRATIVE: CASE EVENT DATE: 202003
